FAERS Safety Report 4939521-1 (Version None)
Quarter: 2006Q1

REPORT INFORMATION
  Report Type: 
  Country: None (occurrence: None)
  Receive Date: 20060306
  Receipt Date: 20060216
  Transmission Date: 20060701
  Serious: Yes (Hospitalization)
  Sender: FDA-Public Use
  Company Number: BE200602003733

PATIENT
  Age: 10 Year
  Sex: Female
  Weight: 14.4 kg

DRUGS (1)
  1. SOMATROPIN (SOMATROPIN) [Suspect]
     Indication: GROWTH HORMONE DEFICIENCY
     Dosage: 0.4 MG, DAILY (1/D), SUBCUTANEOUS
     Route: 058
     Dates: start: 20040310, end: 20040809

REACTIONS (2)
  - CONDITION AGGRAVATED [None]
  - KNEE DEFORMITY [None]
